FAERS Safety Report 18579516 (Version 3)
Quarter: 2021Q1

REPORT INFORMATION
  Report Type: Spontaneous
  Country: CO (occurrence: CO)
  Receive Date: 20201204
  Receipt Date: 20210105
  Transmission Date: 20210419
  Serious: Yes (Other)
  Sender: FDA-Public Use
  Company Number: CO-PFIZER INC-2020469580

PATIENT
  Age: 13 Year
  Sex: Male

DRUGS (3)
  1. LETROZOLE. [Concomitant]
     Active Substance: LETROZOLE
     Indication: EPIPHYSES PREMATURE FUSION
     Dosage: 2.5 MG
  2. GENOTROPIN [Suspect]
     Active Substance: SOMATROPIN
     Indication: UNDERWEIGHT
     Dosage: 1.6 MG
     Route: 058
     Dates: start: 202007
  3. GENOTROPIN [Suspect]
     Active Substance: SOMATROPIN
     Indication: SHORT STATURE
     Dosage: 1.6 MG EVERY DAY

REACTIONS (6)
  - Injection site discolouration [Recovered/Resolved]
  - Fatigue [Unknown]
  - Muscle fatigue [Unknown]
  - Device failure [Recovered/Resolved]
  - Device delivery system issue [Unknown]
  - Injection site vesicles [Recovered/Resolved]

NARRATIVE: CASE EVENT DATE: 2020
